FAERS Safety Report 8467497-1 (Version None)
Quarter: 2012Q2

REPORT INFORMATION
  Report Type: 
  Country: None (occurrence: None)
  Receive Date: 20120626
  Receipt Date: 20120613
  Transmission Date: 20120825
  Serious: Yes (Hospitalization)
  Sender: FDA-Public Use
  Company Number: US-BAYER-2012-059198

PATIENT
  Age: 74 Year
  Sex: Female

DRUGS (8)
  1. CLOPIDOGREL [Concomitant]
  2. ALENDRONATE SODIUM [Concomitant]
  3. ROSUVASTATIN [Concomitant]
     Dosage: UNK
  4. MONTELUKAST [Suspect]
  5. ASPIRIN [Suspect]
     Indication: IMMUNE TOLERANCE INDUCTION
     Dosage: 650 MG, BID
  6. ASPIRIN [Suspect]
     Dosage: 81 MG, QD
  7. CETIRIZINE [Concomitant]
  8. VITAMIN D [Concomitant]

REACTIONS (2)
  - PANCREATITIS [None]
  - ALLERGIC RESPIRATORY DISEASE [None]
